FAERS Safety Report 9220982 (Version 1)
Quarter: 2013Q2

REPORT INFORMATION
  Report Type: Spontaneous
  Country: DE (occurrence: DE)
  Receive Date: 20130409
  Receipt Date: 20130409
  Transmission Date: 20140414
  Serious: Yes (Life-Threatening, Hospitalization)
  Sender: FDA-Public Use
  Company Number: GXKR2013DE001402

PATIENT
  Sex: Male
  Weight: 1.6 kg

DRUGS (1)
  1. CITALOPRAM [Suspect]
     Dosage: MATERNAL DOSE: 20 MG, UNK, START DATE 2010
     Route: 064

REACTIONS (4)
  - Premature baby [Unknown]
  - Pulmonary hypertension [Unknown]
  - Apnoea neonatal [Unknown]
  - Foetal exposure during pregnancy [Unknown]
